FAERS Safety Report 20672054 (Version 1)
Quarter: 2022Q2

REPORT INFORMATION
  Report Type: Report from Study
  Country: US (occurrence: US)
  Receive Date: 20220405
  Receipt Date: 20220405
  Transmission Date: 20220720
  Serious: Yes (Hospitalization)
  Sender: FDA-Public Use
  Company Number: US-BRISTOL-MYERS SQUIBB COMPANY-2022-012817

PATIENT
  Age: 80 Year
  Sex: Male
  Weight: 63.50 kg

DRUGS (1)
  1. REVLIMID [Suspect]
     Active Substance: LENALIDOMIDE
     Indication: Plasma cell myeloma
     Route: 065
     Dates: start: 20220309

REACTIONS (4)
  - Suspected COVID-19 [Unknown]
  - Dyspnoea [Unknown]
  - Dizziness [Unknown]
  - Malaise [Unknown]
